FAERS Safety Report 15398395 (Version 3)
Quarter: 2020Q1

REPORT INFORMATION
  Report Type: Spontaneous
  Country: JP (occurrence: JP)
  Receive Date: 20180918
  Receipt Date: 20200324
  Transmission Date: 20200409
  Serious: Yes (Other)
  Sender: FDA-Public Use
  Company Number: JP-UCBSA-2018041537

PATIENT
  Age: 0 Year
  Sex: Male
  Weight: 3.26 kg

DRUGS (10)
  1. SALAZOSULFAPYRIDINE [Concomitant]
     Active Substance: SULFASALAZINE
     Indication: PRODUCT USED FOR UNKNOWN INDICATION
     Dosage: 500 MILLIGRAM, 2X/DAY (BID)
     Route: 015
     Dates: start: 20160723
  2. PREDNISOLONE. [Concomitant]
     Active Substance: PREDNISOLONE
     Indication: PRODUCT USED FOR UNKNOWN INDICATION
     Dosage: 3.5 MILLIGRAM, 2X/DAY (BID)
     Route: 064
     Dates: start: 20131115
  3. FOLIAMIN [Concomitant]
     Active Substance: FOLIC ACID
     Route: 015
     Dates: start: 20160723
  4. CIMZIA [Suspect]
     Active Substance: CERTOLIZUMAB PEGOL
     Dosage: 200 MG, EV 2 WEEKS(QOW)
     Route: 064
     Dates: end: 20180813
  5. PREDNISOLONE. [Concomitant]
     Active Substance: PREDNISOLONE
     Route: 015
     Dates: start: 20131115
  6. PROGRAF [Concomitant]
     Active Substance: TACROLIMUS
     Indication: PRODUCT USED FOR UNKNOWN INDICATION
     Dosage: 1.25 MG, 2X/DAY (BID)
     Dates: start: 20170902
  7. PROGRAF [Concomitant]
     Active Substance: TACROLIMUS
     Route: 015
     Dates: start: 20170902
  8. FOLIAMIN [Concomitant]
     Active Substance: FOLIC ACID
     Indication: PRODUCT USED FOR UNKNOWN INDICATION
     Dosage: 5 MILLIGRAM, ONCE DAILY (QD)
     Route: 064
     Dates: start: 20160723
  9. CALFINA [Concomitant]
     Active Substance: ALFACALCIDOL
     Indication: PRODUCT USED FOR UNKNOWN INDICATION
     Dosage: 0.5 MICROGRAM, ONCE DAILY (QD)
     Route: 064
     Dates: start: 20150124
  10. CIMZIA [Suspect]
     Active Substance: CERTOLIZUMAB PEGOL
     Indication: RHEUMATOID ARTHRITIS
     Dosage: 200 MG, EV 2 WEEKS(QOW)
     Route: 064
     Dates: start: 201712, end: 201712

REACTIONS (3)
  - Umbilical cord around neck [Recovered/Resolved]
  - Tooth malformation [Unknown]
  - Maternal exposure during pregnancy [Unknown]

NARRATIVE: CASE EVENT DATE: 201712
